FAERS Safety Report 21555831 (Version 2)
Quarter: 2023Q1

REPORT INFORMATION
  Report Type: Spontaneous
  Country: IT (occurrence: IT)
  Receive Date: 20221104
  Receipt Date: 20230126
  Transmission Date: 20230418
  Serious: Yes (Other)
  Sender: FDA-Public Use
  Company Number: None

PATIENT
  Age: 49 Year
  Sex: Male
  Weight: 97 kg

DRUGS (2)
  1. OXALIPLATIN [Suspect]
     Active Substance: OXALIPLATIN
     Indication: Colon neoplasm
     Dosage: 200 MG TOTAL, UNIT DOSE: 200 MG
     Route: 065
     Dates: start: 20221013, end: 20221013
  2. FLUOROURACIL [Suspect]
     Active Substance: FLUOROURACIL
     Indication: Colon neoplasm
     Dosage: 800 MG IV BOLUS + 4800 MG IV CONTINUOUS INFUSION OVER 48 HOURS, DURATION: 1 DAY
     Route: 065
     Dates: start: 20221013, end: 20221014

REACTIONS (3)
  - Seizure [Recovered/Resolved]
  - Trismus [Recovered/Resolved]
  - Infusion related reaction [Recovered/Resolved]

NARRATIVE: CASE EVENT DATE: 20221014
